FAERS Safety Report 20635367 (Version 1)
Quarter: 2022Q1

REPORT INFORMATION
  Report Type: Spontaneous
  Country: FR (occurrence: FR)
  Receive Date: 20220325
  Receipt Date: 20220325
  Transmission Date: 20220423
  Serious: Yes (Disabling)
  Sender: FDA-Public Use
  Company Number: None

PATIENT
  Age: 58 Year
  Sex: Female
  Weight: 70 kg

DRUGS (1)
  1. NASACORT [Suspect]
     Active Substance: TRIAMCINOLONE ACETONIDE
     Indication: Tonsillitis
     Dosage: 1 DF, QD
     Route: 045
     Dates: start: 20050310

REACTIONS (2)
  - Burning sensation mucosal [Not Recovered/Not Resolved]
  - Glossopharyngeal neuralgia [Not Recovered/Not Resolved]
